FAERS Safety Report 19827514 (Version 3)
Quarter: 2023Q4

REPORT INFORMATION
  Report Type: Spontaneous
  Country: US (occurrence: US)
  Receive Date: 20210914
  Receipt Date: 20231020
  Transmission Date: 20240110
  Serious: Yes (Other)
  Sender: FDA-Public Use
  Company Number: US-COOPERSURGICAL, INC.-US-2021CPS002597

PATIENT
  Age: 38 Year
  Sex: Female
  Weight: 82.54 kg

DRUGS (6)
  1. PARAGARD T 380A [Suspect]
     Active Substance: COPPER
     Indication: Contraception
     Dosage: UNK
     Route: 015
     Dates: start: 20181211
  2. EFFEXOR [Concomitant]
     Active Substance: VENLAFAXINE HYDROCHLORIDE
     Indication: Depression
     Dosage: UNK
     Route: 065
     Dates: start: 201801, end: 202001
  3. GABAPENTIN [Concomitant]
     Active Substance: GABAPENTIN
     Indication: Product used for unknown indication
     Dosage: 100 MG
     Route: 048
     Dates: start: 20181211
  4. VISTARIL [Concomitant]
     Active Substance: HYDROXYZINE PAMOATE
     Indication: Product used for unknown indication
     Dosage: 50 MG
     Route: 048
  5. CELECOXIB [Concomitant]
     Active Substance: CELECOXIB
     Indication: Product used for unknown indication
     Dosage: 20 MG
     Route: 048
     Dates: start: 20181211
  6. NALTREXONE [Concomitant]
     Active Substance: NALTREXONE
     Indication: Product used for unknown indication
     Dosage: 50 MG
     Dates: start: 20181211

REACTIONS (19)
  - Device breakage [Not Recovered/Not Resolved]
  - Foreign body in reproductive tract [Not Recovered/Not Resolved]
  - Complication of device removal [Not Recovered/Not Resolved]
  - Pain [Unknown]
  - Abnormal uterine bleeding [Unknown]
  - Device expulsion [Not Recovered/Not Resolved]
  - Emotional distress [None]
  - Otitis externa [Unknown]
  - Complication of device insertion [Recovered/Resolved]
  - Upper respiratory tract infection [Unknown]
  - Otitis media [Unknown]
  - Depression [Unknown]
  - Anxiety [Recovered/Resolved]
  - Bacterial vaginosis [Unknown]
  - Abdominal distension [Unknown]
  - Vaginal discharge [Unknown]
  - Sensation of foreign body [Unknown]
  - Menstruation irregular [Unknown]
  - Heavy menstrual bleeding [Unknown]

NARRATIVE: CASE EVENT DATE: 20181211
